FAERS Safety Report 20083553 (Version 1)
Quarter: 2021Q4

REPORT INFORMATION
  Report Type: Spontaneous
  Country: GB (occurrence: None)
  Receive Date: 20211118
  Receipt Date: 20211118
  Transmission Date: 20220303
  Serious: Yes (Death, Other)
  Sender: FDA-Public Use
  Company Number: GB-ROCHE-2959871

PATIENT
  Sex: Female

DRUGS (1)
  1. KADCYLA [Suspect]
     Active Substance: ADO-TRASTUZUMAB EMTANSINE
     Indication: Product used for unknown indication
     Dosage: RECIEVED 6 CYCLE OF KADCYLA
     Route: 065

REACTIONS (3)
  - Off label use [Unknown]
  - Death [Fatal]
  - Pneumothorax [Unknown]
